FAERS Safety Report 4548104-7 (Version None)
Quarter: 2004Q4

REPORT INFORMATION
  Report Type: 
  Country: None (occurrence: None)
  Receive Date: 20041220
  Receipt Date: 20040923
  Transmission Date: 20050328
  Serious: Yes (Other)
  Sender: FDA-Public Use
  Company Number: 2004-04170

PATIENT
  Age: 46 Year
  Sex: Female
  Weight: 52.2 kg

DRUGS (1)
  1. FIORICET [Suspect]
     Indication: MIGRAINE
     Dosage: ORAL
     Route: 048
     Dates: start: 19740101

REACTIONS (2)
  - ABNORMAL BEHAVIOUR [None]
  - DRUG ADDICT [None]
